FAERS Safety Report 8927998 (Version 1)
Quarter: 2012Q4

REPORT INFORMATION
  Report Type: Spontaneous
  Country: US (occurrence: None)
  Receive Date: 20121126
  Receipt Date: 20121126
  Transmission Date: 20130627
  Serious: No
  Sender: FDA-Public Use
  Company Number: None

PATIENT
  Age: 59 Year
  Sex: Male
  Weight: 70.31 kg

DRUGS (1)
  1. GABAPENTIN [Suspect]
     Indication: ARTHRITIC PAINS
     Dosage: 2 capsules
     Route: 048

REACTIONS (7)
  - Diarrhoea [None]
  - Constipation [None]
  - Influenza like illness [None]
  - Pain [None]
  - Feeling abnormal [None]
  - Product substitution issue [None]
  - Product quality issue [None]
